FAERS Safety Report 11716987 (Version 1)
Quarter: 2015Q4

REPORT INFORMATION
  Report Type: Report from Study
  Country: US (occurrence: US)
  Receive Date: 20151109
  Receipt Date: 20151109
  Transmission Date: 20160304
  Serious: Yes (Hospitalization)
  Sender: FDA-Public Use
  Company Number: US-KADMON PHARMACEUTICALS, LLC-KAD201511-003847

PATIENT
  Age: 56 Year
  Sex: Male
  Weight: 105.23 kg

DRUGS (13)
  1. RIBAVIRIN 600 MG TABLETS [Suspect]
     Active Substance: RIBAVIRIN
     Indication: HEPATITIS C
     Route: 048
     Dates: start: 20150929, end: 20151020
  2. NADOLOL 20 MG [Concomitant]
  3. ISOSORBIDE 40 MG [Concomitant]
  4. PRAVASTATIN 20 MG [Concomitant]
  5. ASPIRIN 81 MG [Concomitant]
     Active Substance: ASPIRIN
  6. VIEKIRA PAK [Suspect]
     Active Substance: DASABUVIR\OMBITASVIR\PARITAPREVIR\RITONAVIR
     Indication: HEPATIC CIRRHOSIS
  7. PANTOPRAZOLE 40 MG [Concomitant]
  8. TRAMADOL 50 MG [Concomitant]
     Active Substance: TRAMADOL
  9. RIBAVIRIN 600 MG TABLETS [Suspect]
     Active Substance: RIBAVIRIN
     Indication: HEPATIC CIRRHOSIS
  10. LASIX 40 MG [Concomitant]
  11. SPIRONOLACTONE 20 MG [Concomitant]
  12. VIEKIRA PAK [Suspect]
     Active Substance: DASABUVIR\OMBITASVIR\PARITAPREVIR\RITONAVIR
     Indication: HEPATITIS C
     Dosage: 3 TABLETS IN AM, 1 TABLET IN PM
     Route: 048
     Dates: start: 20150929, end: 20151020
  13. XIFAXAN 550 MG [Concomitant]

REACTIONS (7)
  - Cardiac cirrhosis [Unknown]
  - Drug ineffective [Unknown]
  - Encephalopathy [Recovered/Resolved]
  - Gout [Unknown]
  - Confusional state [Recovered/Resolved]
  - Blood bilirubin increased [Unknown]
  - Acute kidney injury [Unknown]

NARRATIVE: CASE EVENT DATE: 201510
